FAERS Safety Report 17606916 (Version 8)
Quarter: 2021Q1

REPORT INFORMATION
  Report Type: Report from Study
  Country: US (occurrence: US)
  Receive Date: 20200331
  Receipt Date: 20210322
  Transmission Date: 20210419
  Serious: Yes (Hospitalization, Other)
  Sender: FDA-Public Use
  Company Number: NVSC2020US088916

PATIENT
  Age: 80 Year
  Sex: Male

DRUGS (6)
  1. ENTRESTO [Suspect]
     Active Substance: SACUBITRIL\VALSARTAN
     Indication: CARDIAC FAILURE CHRONIC
     Dosage: 1 DF (24/26 MG), BID
     Route: 048
     Dates: start: 201912
  2. ADVAIR HFA [Concomitant]
     Active Substance: FLUTICASONE PROPIONATE\SALMETEROL XINAFOATE
     Indication: PRODUCT USED FOR UNKNOWN INDICATION
     Dosage: UNK
     Route: 065
  3. ENTRESTO [Suspect]
     Active Substance: SACUBITRIL\VALSARTAN
     Indication: CARDIAC FAILURE
     Dosage: 50 MG (24/26MG), BID
     Route: 048
     Dates: start: 202003
  4. ENTRESTO [Suspect]
     Active Substance: SACUBITRIL\VALSARTAN
     Indication: CARDIAC DISORDER
     Dosage: UNK, BID (1 TABLET IN MORNING AND 0.5 TABLET IN EVENING)
     Route: 048
  5. ENTRESTO [Suspect]
     Active Substance: SACUBITRIL\VALSARTAN
     Dosage: UNK
     Route: 065
     Dates: start: 20191201
  6. ENTRESTO [Suspect]
     Active Substance: SACUBITRIL\VALSARTAN
     Indication: CARDIAC FAILURE
     Dosage: UNK, BID (1/2 TABLET IN MORNING AND 0.5 TABLET IN EVENING)
     Route: 048
     Dates: start: 202006

REACTIONS (19)
  - Foreign body in throat [Recovered/Resolved]
  - Musculoskeletal discomfort [Unknown]
  - Road traffic accident [Unknown]
  - Nasopharyngitis [Unknown]
  - Heart rate increased [Recovered/Resolved]
  - Myalgia [Unknown]
  - Chronic obstructive pulmonary disease [Unknown]
  - Oropharyngeal pain [Recovered/Resolved]
  - Dizziness [Unknown]
  - Throat irritation [Unknown]
  - Heart rate increased [Unknown]
  - Cough [Unknown]
  - Choking [Unknown]
  - Ventricular extrasystoles [Recovering/Resolving]
  - Vaccination complication [Unknown]
  - Wrong technique in product usage process [Unknown]
  - Muscle strain [Unknown]
  - Therapeutic response unexpected [Recovering/Resolving]
  - Wrong technique in product usage process [Recovered/Resolved]

NARRATIVE: CASE EVENT DATE: 20200510
